FAERS Safety Report 8180324-5 (Version None)
Quarter: 2012Q1

REPORT INFORMATION
  Report Type: 
  Country: None (occurrence: None)
  Receive Date: 20120302
  Receipt Date: 20120228
  Transmission Date: 20120608
  Serious: Yes (Hospitalization)
  Sender: FDA-Public Use
  Company Number: FR-SANOFI-AVENTIS-2012SA005810

PATIENT
  Age: 80 Year
  Sex: Male

DRUGS (11)
  1. CANDESARTAN CILEXETIL [Suspect]
     Route: 048
     Dates: end: 20120101
  2. POTASSIUM CHLORIDE [Concomitant]
     Route: 065
  3. ACETAMINOPHEN [Suspect]
     Route: 048
     Dates: end: 20120101
  4. RISPERDAL [Suspect]
     Route: 048
     Dates: end: 20120101
  5. PREVISCAN [Concomitant]
     Route: 065
  6. ELIGARD [Concomitant]
     Route: 065
  7. PANTOPRAZOLE [Concomitant]
     Route: 065
  8. CLAFORAN [Concomitant]
     Indication: ANTIBIOTIC THERAPY
  9. LASIX [Suspect]
     Route: 048
     Dates: end: 20120101
  10. CORDARONE [Suspect]
     Route: 048
     Dates: end: 20120101
  11. OFLOXACIN [Concomitant]
     Indication: ANTIBIOTIC THERAPY

REACTIONS (3)
  - SEPTIC SHOCK [None]
  - PANCREATITIS ACUTE [None]
  - HYPOTHERMIA [None]
